FAERS Safety Report 21002173 (Version 1)
Quarter: 2022Q2

REPORT INFORMATION
  Report Type: Spontaneous
  Country: FR (occurrence: FR)
  Receive Date: 20220624
  Receipt Date: 20220624
  Transmission Date: 20220720
  Serious: Yes (Hospitalization)
  Sender: FDA-Public Use
  Company Number: None

PATIENT
  Age: 65 Year
  Sex: Female
  Weight: 94 kg

DRUGS (6)
  1. DILTIAZEM HYDROCHLORIDE [Suspect]
     Active Substance: DILTIAZEM HYDROCHLORIDE
     Indication: Atrial fibrillation
     Dosage: UNIT DOSE : 300 MG , DURATION : 11 DAYS , FREQUENCY TIME : 1 DAY
     Route: 048
     Dates: start: 20220402, end: 20220413
  2. ELIQUIS [Suspect]
     Active Substance: APIXABAN
     Indication: Atrial fibrillation
     Dosage: STRENGTH : 5 MG , UNIT DOSE : 2 DF , FREQUENCY TIME : 1 DAY , DURATION : 13 DAYS
     Route: 048
     Dates: start: 20220331, end: 20220413
  3. PRISTINAMYCIN [Suspect]
     Active Substance: PRISTINAMYCIN
     Indication: Abscess
     Dosage: DURATION : 13 DAYS
     Route: 048
     Dates: start: 20220331, end: 20220413
  4. CORDARONE [Suspect]
     Active Substance: AMIODARONE HYDROCHLORIDE
     Indication: Atrial fibrillation
     Dosage: DURATION : 13 DAYS
     Route: 048
     Dates: start: 20220331, end: 20220413
  5. CHOLECALCIFEROL [Concomitant]
     Active Substance: CHOLECALCIFEROL
     Indication: Product used for unknown indication
  6. LOXEN [Concomitant]
     Indication: Product used for unknown indication

REACTIONS (1)
  - Rash maculo-papular [Recovered/Resolved]

NARRATIVE: CASE EVENT DATE: 20220411
